FAERS Safety Report 6016744-4 (Version None)
Quarter: 2008Q4

REPORT INFORMATION
  Report Type: 
  Country: None (occurrence: None)
  Receive Date: 20081218
  Receipt Date: 20081205
  Transmission Date: 20090506
  Serious: Yes (Hospitalization)
  Sender: FDA-Public Use
  Company Number: SPV1-2008-02696

PATIENT
  Age: 27 Year
  Sex: Female
  Weight: 65.8 kg

DRUGS (3)
  1. VYVANSE [Suspect]
     Indication: ATTENTION DEFICIT/HYPERACTIVITY DISORDER
     Dosage: 50 MG, 1X/DAY: QD MONDAY THROUGH FRIDAY, ORAL
     Route: 048
     Dates: start: 20081004, end: 20081107
  2. NUVARING [Concomitant]
  3. NULEV (HYOSCYAMNE SULFATE) [Concomitant]

REACTIONS (6)
  - ANXIETY [None]
  - CELLULITIS [None]
  - CHEST PAIN [None]
  - LYMPH GLAND INFECTION [None]
  - PAIN IN EXTREMITY [None]
  - STRESS CARDIOMYOPATHY [None]
